FAERS Safety Report 15499413 (Version 1)
Quarter: 2018Q4

REPORT INFORMATION
  Report Type: Spontaneous
  Country: US (occurrence: US)
  Receive Date: 20181007
  Receipt Date: 20181007
  Transmission Date: 20190205
  Serious: Yes (Other)
  Sender: FDA-Public Use
  Company Number: None

PATIENT
  Age: 70 Year
  Sex: Male
  Weight: 90 kg

DRUGS (3)
  1. DULOXETINE HCL DR CAPS 30MG LUPIN PHARM [Suspect]
     Active Substance: DULOXETINE HYDROCHLORIDE
     Indication: SCIATICA
     Dosage: ?          QUANTITY:1 CAPSULE(S);?
     Route: 048
     Dates: start: 20171101, end: 20181002
  2. SIMVASTATIN. [Concomitant]
     Active Substance: SIMVASTATIN
  3. LISINOPRIL. [Concomitant]
     Active Substance: LISINOPRIL

REACTIONS (5)
  - Visual impairment [None]
  - Auditory disorder [None]
  - Dizziness [None]
  - Paraesthesia [None]
  - Withdrawal syndrome [None]

NARRATIVE: CASE EVENT DATE: 20181001
